FAERS Safety Report 6272907-4 (Version None)
Quarter: 2009Q3

REPORT INFORMATION
  Report Type: 
  Country: None (occurrence: None)
  Receive Date: 20090717
  Receipt Date: 20090709
  Transmission Date: 20100115
  Serious: Yes (Other)
  Sender: FDA-Public Use
  Company Number: CO-PFIZER INC-2009239985

PATIENT
  Age: 71 Year

DRUGS (3)
  1. LIPITOR [Suspect]
     Indication: BLOOD CHOLESTEROL INCREASED
     Dosage: 20 MG, 1X/DAY
     Route: 048
     Dates: start: 19990101
  2. CAPOTEN [Concomitant]
     Indication: HYPERTENSION
     Dosage: 50 MG, UNK
  3. ASPIRIN [Concomitant]
     Dosage: 325 MG, UNK

REACTIONS (3)
  - ANAEMIA [None]
  - CORONARY ARTERY BYPASS [None]
  - VERTIGO [None]
